FAERS Safety Report 19553773 (Version 1)
Quarter: 2021Q3

REPORT INFORMATION
  Report Type: Spontaneous
  Country: US (occurrence: US)
  Receive Date: 20210714
  Receipt Date: 20210714
  Transmission Date: 20211014
  Serious: Yes (Hospitalization, Other)
  Sender: FDA-Public Use
  Company Number: US-GLAXOSMITHKLINE-US2021150488

PATIENT
  Age: 37 Year
  Sex: Female

DRUGS (1)
  1. NUCALA [Suspect]
     Active Substance: MEPOLIZUMAB
     Indication: ASTHMA
     Dosage: 100 MG/ML
     Route: 058
     Dates: start: 201908

REACTIONS (13)
  - Transfusion [Unknown]
  - Internal haemorrhage [Unknown]
  - Gastric bypass [Unknown]
  - Procedural haemorrhage [Unknown]
  - Pruritus [Unknown]
  - Wrong technique in device usage process [Unknown]
  - Gastric infection [Recovered/Resolved]
  - Skin atrophy [Unknown]
  - Weight decreased [Unknown]
  - Scratch [Unknown]
  - Gastric operation [Unknown]
  - Skin haemorrhage [Unknown]
  - Cough [Unknown]

NARRATIVE: CASE EVENT DATE: 2019
